FAERS Safety Report 19586130 (Version 2)
Quarter: 2021Q3

REPORT INFORMATION
  Report Type: Report from Study
  Country: JP (occurrence: JP)
  Receive Date: 20210721
  Receipt Date: 20210810
  Transmission Date: 20211014
  Serious: Yes (Other)
  Sender: FDA-Public Use
  Company Number: JP-JNJFOC-20210730471

PATIENT

DRUGS (1)
  1. STELARA [Suspect]
     Active Substance: USTEKINUMAB
     Indication: CROHN^S DISEASE
     Dosage: DOSE UNKNOWN
     Route: 058

REACTIONS (9)
  - Headache [Unknown]
  - Fatigue [Unknown]
  - Rash [Unknown]
  - Nasopharyngitis [Unknown]
  - Nausea [Unknown]
  - Upper respiratory tract infection [Unknown]
  - Peritonitis [Unknown]
  - Arthralgia [Unknown]
  - Therapeutic product effect incomplete [Unknown]
